FAERS Safety Report 5262427-8 (Version None)
Quarter: 2007Q1

REPORT INFORMATION
  Report Type: 
  Country: None (occurrence: None)
  Receive Date: 20070308
  Receipt Date: 20070308
  Transmission Date: 20070707
  Serious: Yes (Other)
  Sender: FDA-Public Use
  Company Number: None

PATIENT
  Sex: Female
  Weight: 61.2356 kg

DRUGS (2)
  1. BUPROPION HCL [Suspect]
     Indication: DEPRESSION
     Dosage: 1 TABLET 1X DAY PO
     Route: 048
     Dates: start: 20070212, end: 20070303
  2. WELLBUTRIN XL [Suspect]

REACTIONS (5)
  - DEPRESSION [None]
  - DISEASE RECURRENCE [None]
  - DIZZINESS [None]
  - STOMACH DISCOMFORT [None]
  - THERAPEUTIC RESPONSE UNEXPECTED WITH DRUG SUBSTITUTION [None]
